FAERS Safety Report 7416234-8 (Version None)
Quarter: 2011Q2

REPORT INFORMATION
  Report Type: 
  Country: None (occurrence: None)
  Receive Date: 20110406
  Receipt Date: 20110322
  Transmission Date: 20111010
  Serious: Yes (Other)
  Sender: FDA-Public Use
  Company Number: 2011MA002744

PATIENT
  Age: 48 Year
  Sex: Male

DRUGS (1)
  1. LEVETIRACETAM [Suspect]
     Indication: CONVULSION
     Dosage: 2 G;QD

REACTIONS (3)
  - MOVEMENT DISORDER [None]
  - EYE DISORDER [None]
  - FATIGUE [None]
